FAERS Safety Report 23264676 (Version 1)
Quarter: 2023Q4

REPORT INFORMATION
  Report Type: Spontaneous
  Country: US (occurrence: US)
  Receive Date: 20231205
  Receipt Date: 20231205
  Transmission Date: 20240110
  Serious: Yes (Death)
  Sender: FDA-Public Use
  Company Number: US-STRIDES ARCOLAB LIMITED-2023SP018030

PATIENT
  Age: 62 Year
  Sex: Female

DRUGS (1)
  1. ETOPOSIDE [Suspect]
     Active Substance: ETOPOSIDE
     Indication: Breast cancer stage III
     Dosage: UNK
     Route: 065

REACTIONS (2)
  - Acute myelomonocytic leukaemia [Fatal]
  - Sepsis [Fatal]
